FAERS Safety Report 18105093 (Version 7)
Quarter: 2021Q1

REPORT INFORMATION
  Report Type: Spontaneous
  Country: CA (occurrence: CA)
  Receive Date: 20200804
  Receipt Date: 20210212
  Transmission Date: 20210419
  Serious: Yes (Hospitalization, Other)
  Sender: FDA-Public Use
  Company Number: CA-CELLTRION INC.-2017CA011863

PATIENT

DRUGS (25)
  1. INFLECTRA [Suspect]
     Active Substance: INFLIXIMAB-DYYB
     Dosage: 400 MG (5 MG/KG), ON 0, 2, 6, THEN EVERY 8 WEEKS
     Route: 042
     Dates: start: 20171122
  2. INFLECTRA [Suspect]
     Active Substance: INFLIXIMAB-DYYB
     Dosage: 400 MG
     Route: 042
     Dates: start: 20210203
  3. EZETIMIBE. [Concomitant]
     Active Substance: EZETIMIBE
     Dosage: UNK
     Route: 065
  4. OLMETEC [Concomitant]
     Active Substance: OLMESARTAN MEDOXOMIL
     Dosage: UNK
     Route: 065
  5. CALCIUM [Concomitant]
     Active Substance: CALCIUM
     Dosage: UNK
     Route: 065
  6. INFLECTRA [Suspect]
     Active Substance: INFLIXIMAB-DYYB
     Dosage: 400 MG (5 MG/KG), ON 0, 2, 6, THEN EVERY 8 WEEKS
     Route: 042
  7. INFLECTRA [Suspect]
     Active Substance: INFLIXIMAB-DYYB
     Dosage: 400 MG, EVERY 8 WEEKS
     Route: 042
     Dates: start: 20180720, end: 20180720
  8. INFLECTRA [Suspect]
     Active Substance: INFLIXIMAB-DYYB
     Dosage: 5 MG/KG ON 0, 2, 6 WEEKS, THE EVERY 8 WEEKS
     Route: 042
     Dates: start: 20200103
  9. INFLECTRA [Suspect]
     Active Substance: INFLIXIMAB-DYYB
     Dosage: 5 MG/KG ON 0, 2, 6 WEEKS, THE EVERY 8 WEEKS
     Route: 042
     Dates: start: 20200916
  10. INFLECTRA [Suspect]
     Active Substance: INFLIXIMAB-DYYB
     Dosage: 5 MG/KG ON 0, 2, 6 WEEKS, THE EVERY 8 WEEKS (RE?INDUCTION)
     Route: 042
     Dates: start: 20201013
  11. INFLECTRA [Suspect]
     Active Substance: INFLIXIMAB-DYYB
     Dosage: 5 MG/KG ON 0, 2, 6 WEEKS, THE EVERY 8 WEEKS (RE?INDUCTION)
     Route: 042
     Dates: start: 20200902
  12. INFLECTRA [Suspect]
     Active Substance: INFLIXIMAB-DYYB
     Dosage: 5 MG/KG ON 0, 2, 6 WEEKS, THE EVERY 8 WEEKS (RE?INDUCTION)
     Route: 042
     Dates: start: 20201209
  13. SERTRALINE [Concomitant]
     Active Substance: SERTRALINE HYDROCHLORIDE
     Dosage: UNK
     Route: 065
  14. ATORVASTATIN [Concomitant]
     Active Substance: ATORVASTATIN
     Dosage: UNK
     Route: 065
  15. INFLECTRA [Suspect]
     Active Substance: INFLIXIMAB-DYYB
     Dosage: 400 MG, EVERY 8 WEEKS
     Route: 042
     Dates: start: 20180720, end: 20180720
  16. METHOTREXATE. [Concomitant]
     Active Substance: METHOTREXATE
     Dosage: UNK
     Route: 065
  17. MEZAVANT [Concomitant]
     Active Substance: MESALAMINE
     Dosage: UNK
     Route: 065
  18. INFLECTRA [Suspect]
     Active Substance: INFLIXIMAB-DYYB
     Dosage: 400 MG (5 MG/KG), ON 0, 2, 6, THEN EVERY 8 WEEKS
     Route: 042
     Dates: start: 20180117
  19. PANTOPRAZOLE [Concomitant]
     Active Substance: PANTOPRAZOLE
     Dosage: UNK
     Route: 065
  20. CLOPIDOGREL [Concomitant]
     Active Substance: CLOPIDOGREL BISULFATE
     Dosage: UNK
     Route: 065
  21. INFLECTRA [Suspect]
     Active Substance: INFLIXIMAB-DYYB
     Indication: CROHN^S DISEASE
     Dosage: 400 MG (5 MG/KG), ON 0, 2, 6, THEN EVERY 8 WEEKS
     Route: 042
     Dates: start: 20170815
  22. INFLECTRA [Suspect]
     Active Substance: INFLIXIMAB-DYYB
     Dosage: 400 MG (5 MG/KG), ON 0, 2, 6, THEN EVERY 8 WEEKS
     Route: 042
     Dates: start: 20180519
  23. INFLECTRA [Suspect]
     Active Substance: INFLIXIMAB-DYYB
     Dosage: 5 MG/KG ON 0, 2, 6 WEEKS, THE EVERY 8 WEEKS (RE?INDUCTION)
     Route: 042
     Dates: start: 20190927
  24. INFLECTRA [Suspect]
     Active Substance: INFLIXIMAB-DYYB
     Dosage: 5 MG/KG ON 0, 2, 6 WEEKS, THE EVERY 8 WEEKS
     Route: 042
     Dates: start: 20191108
  25. INFLECTRA [Suspect]
     Active Substance: INFLIXIMAB-DYYB
     Dosage: 400 MG, EVERY 8 WEEKS
     Route: 042
     Dates: start: 20180720, end: 20180720

REACTIONS (12)
  - Back pain [Not Recovered/Not Resolved]
  - Anal fistula [Unknown]
  - Blood pressure increased [Unknown]
  - Anal fissure [Unknown]
  - Fatigue [Not Recovered/Not Resolved]
  - Ear pain [Unknown]
  - Weight decreased [Unknown]
  - Body temperature decreased [Unknown]
  - Insomnia [Unknown]
  - Anal abscess [Not Recovered/Not Resolved]
  - Fall [Unknown]
  - Incorrect dose administered [Unknown]

NARRATIVE: CASE EVENT DATE: 201708
